FAERS Safety Report 4388661-7 (Version None)
Quarter: 2004Q2

REPORT INFORMATION
  Report Type: 
  Country: None (occurrence: None)
  Receive Date: 20040624
  Receipt Date: 20040614
  Transmission Date: 20050107
  Serious: Yes (Hospitalization)
  Sender: FDA-Public Use
  Company Number: 2004CG01136

PATIENT
  Age: 83 Year
  Sex: Male

DRUGS (10)
  1. HYTACAND [Suspect]
  2. STABLON [Suspect]
  3. RULID [Suspect]
     Indication: BRONCHITIS
     Dosage: 1 DF BID PO
     Route: 048
     Dates: start: 20040315, end: 20040401
  4. NOROXIN [Suspect]
     Indication: URINARY TRACT INFECTION
     Dosage: 1 DF BID PO
     Route: 048
     Dates: start: 20040215, end: 20040229
  5. HYPERIUM [Suspect]
  6. NIFEDIPINE [Suspect]
     Dosage: 1 DF DAILY PO
     Route: 048
  7. PLAVIX [Suspect]
  8. MEDIATOR [Suspect]
  9. PRAVASTATIN [Suspect]
  10. ULTRA-LEVURE [Suspect]

REACTIONS (6)
  - BLISTER [None]
  - BRONCHITIS [None]
  - EOSINOPHIL COUNT INCREASED [None]
  - PEMPHIGOID [None]
  - URINARY TRACT INFECTION [None]
  - WHITE BLOOD CELL COUNT INCREASED [None]
